FAERS Safety Report 4422029-X (Version None)
Quarter: 2004Q3

REPORT INFORMATION
  Report Type: 
  Country: None (occurrence: None)
  Receive Date: 20040804
  Receipt Date: 20040712
  Transmission Date: 20050211
  Serious: Yes (Hospitalization)
  Sender: FDA-Public Use
  Company Number: US97052176A

PATIENT
  Age: 1 Day
  Sex: Male
  Weight: 3 kg

DRUGS (1)
  1. PROZAC [Suspect]

REACTIONS (6)
  - AUTISM [None]
  - DRUG EXPOSURE DURING PREGNANCY [None]
  - HEART RATE IRREGULAR [None]
  - HYPOGLYCAEMIA NEONATAL [None]
  - HYPOTHERMIA NEONATAL [None]
  - NEONATAL DISORDER [None]
